FAERS Safety Report 4280082-0 (Version None)
Quarter: 2004Q1

REPORT INFORMATION
  Report Type: 
  Country: None (occurrence: None)
  Receive Date: 20040126
  Receipt Date: 20040113
  Transmission Date: 20041129
  Serious: Yes (Hospitalization)
  Sender: FDA-Public Use
  Company Number: US063837

PATIENT
  Age: 39 Year
  Sex: Male

DRUGS (6)
  1. ENBREL [Suspect]
     Indication: RHEUMATOID ARTHRITIS
     Dosage: 25 MG, 2 IN 1 WEEKS, SC
     Route: 058
     Dates: start: 20021111, end: 20031119
  2. PREDNISONE [Concomitant]
  3. ROFECOXIB [Concomitant]
  4. DIPHENHYRAMINE HYDROCHLORIDE [Concomitant]
  5. IBUPROFEN [Concomitant]
  6. VICODIN [Concomitant]

REACTIONS (1)
  - SYSTEMIC LUPUS ERYTHEMATOSUS [None]
